FAERS Safety Report 13701688 (Version 2)
Quarter: 2017Q3

REPORT INFORMATION
  Report Type: Spontaneous
  Country: FR (occurrence: FR)
  Receive Date: 20170629
  Receipt Date: 20170908
  Transmission Date: 20171127
  Serious: Yes (Other)
  Sender: FDA-Public Use
  Company Number: FR-BAYER-2017-123533

PATIENT
  Age: 28 Year
  Sex: Female

DRUGS (1)
  1. MIRENA [Suspect]
     Active Substance: LEVONORGESTREL
     Indication: CONTRACEPTION
     Dosage: 20 MCG/24HR, CONT
     Route: 015
     Dates: start: 20130219, end: 20170620

REACTIONS (12)
  - Depression [Recovered/Resolved]
  - Eczema [Recovering/Resolving]
  - Vision blurred [Not Recovered/Not Resolved]
  - Sleep disorder [Recovered/Resolved]
  - Tinnitus [Recovered/Resolved]
  - Loss of libido [Recovered/Resolved]
  - Paraesthesia [Recovered/Resolved]
  - Breast pain [Recovered/Resolved]
  - Back pain [Recovered/Resolved]
  - Fatigue [Recovered/Resolved]
  - Migraine [Recovered/Resolved]
  - Vaginal discharge [Recovered/Resolved]

NARRATIVE: CASE EVENT DATE: 2016
